FAERS Safety Report 9418225 (Version 1)
Quarter: 2013Q3

REPORT INFORMATION
  Report Type: Spontaneous
  Country: BR (occurrence: BR)
  Receive Date: 20130724
  Receipt Date: 20130724
  Transmission Date: 20140515
  Serious: Yes (Hospitalization)
  Sender: FDA-Public Use
  Company Number: BR-B.I. PHARMACEUTICALS,INC./RIDGEFIELD-2013-BR-00856BR

PATIENT
  Age: 67 Year
  Sex: Male
  Weight: 69 kg

DRUGS (21)
  1. SPIRIVA RESPIMAT [Suspect]
     Indication: EMPHYSEMA
     Dosage: 5 MCG
     Route: 055
     Dates: start: 2012
  2. SPIRIVA RESPIMAT [Suspect]
     Indication: ASTHMA
  3. AEROFRIN [Concomitant]
     Indication: ASTHMA
  4. AEROFRIN [Concomitant]
     Indication: EMPHYSEMA
  5. AERODINI [Concomitant]
     Indication: ASTHMA
  6. AERODINI [Concomitant]
     Indication: EMPHYSEMA
  7. ATROVENT [Concomitant]
     Indication: ASTHMA
  8. ATROVENT [Concomitant]
     Indication: EMPHYSEMA
  9. BEROTEC [Concomitant]
     Indication: ASTHMA
  10. BEROTEC [Concomitant]
     Indication: EMPHYSEMA
  11. CORTICOIDS [Concomitant]
     Indication: ASTHMA
  12. CORTICOIDS [Concomitant]
     Indication: EMPHYSEMA
  13. SALBUTAMOL [Concomitant]
     Indication: ASTHMA
  14. SALBUTAMOL [Concomitant]
     Indication: EMPHYSEMA
  15. SIFROGET [Concomitant]
     Indication: ASTHMA
  16. SIFROGET [Concomitant]
     Indication: EMPHYSEMA
  17. MIOFILINA [Concomitant]
     Indication: ASTHMA
  18. MIOFILINA [Concomitant]
     Indication: EMPHYSEMA
  19. INSULIN [Concomitant]
     Indication: TYPE 2 DIABETES MELLITUS
  20. AAS [Concomitant]
     Indication: CEREBROVASCULAR ACCIDENT PROPHYLAXIS
  21. METFORMIN [Concomitant]
     Indication: TYPE 2 DIABETES MELLITUS

REACTIONS (1)
  - Pneumonia [Recovered/Resolved]
